FAERS Safety Report 9397332 (Version 1)
Quarter: 2013Q3

REPORT INFORMATION
  Report Type: Spontaneous
  Country: US (occurrence: None)
  Receive Date: 20130711
  Receipt Date: 20130711
  Transmission Date: 20140515
  Serious: Yes (Other)
  Sender: FDA-Public Use
  Company Number: None

PATIENT
  Age: 42 Year
  Sex: Male

DRUGS (7)
  1. HYDRALAZINE [Suspect]
     Indication: DRUG PRESCRIBING ERROR
     Route: 048
     Dates: start: 20130603, end: 20130622
  2. METOPROLOL TARTRATE [Concomitant]
  3. FISH OIL [Concomitant]
  4. C +E [Concomitant]
  5. NIACIN [Concomitant]
  6. CLONAZEPAM [Concomitant]
  7. METOPROLOL [Concomitant]

REACTIONS (9)
  - Rash [None]
  - Drug prescribing error [None]
  - Wrong drug administered [None]
  - Headache [None]
  - Visual impairment [None]
  - Hypoaesthesia [None]
  - Hypoaesthesia [None]
  - Chest pain [None]
  - Blood pressure increased [None]
